FAERS Safety Report 5333836-3 (Version None)
Quarter: 2007Q2

REPORT INFORMATION
  Report Type: 
  Country: None (occurrence: None)
  Receive Date: 20070524
  Receipt Date: 20070522
  Transmission Date: 20071010
  Serious: Yes (Hospitalization)
  Sender: FDA-Public Use
  Company Number: JP-ASTRAZENECA-2007AP02056

PATIENT
  Age: 20386 Day
  Sex: Male

DRUGS (16)
  1. SEROQUEL [Suspect]
     Indication: SCHIZOPHRENIA
     Route: 048
  2. SEROQUEL [Suspect]
     Dosage: DIVIDED INTO 3 DOSES
     Route: 048
     Dates: start: 20061014, end: 20061230
  3. SEROQUEL [Suspect]
     Route: 048
     Dates: start: 20061230
  4. ABILIFY [Suspect]
     Indication: SCHIZOPHRENIA
     Route: 048
     Dates: start: 20060617, end: 20060902
  5. ABILIFY [Suspect]
     Route: 048
     Dates: start: 20060902, end: 20070203
  6. ABILIFY [Suspect]
     Route: 048
     Dates: start: 20070203, end: 20070217
  7. ABILIFY [Suspect]
     Route: 048
     Dates: start: 20070217
  8. HIRNAMIN [Suspect]
     Indication: SCHIZOPHRENIA
     Route: 048
     Dates: start: 20070310
  9. RISPERDAL [Concomitant]
     Route: 048
  10. LORAZEPAM [Concomitant]
     Indication: SCHIZOPHRENIA
     Route: 048
  11. NITRAZEPAM [Concomitant]
     Indication: SCHIZOPHRENIA
     Route: 048
     Dates: end: 20070303
  12. NITRAZEPAM [Concomitant]
     Route: 048
     Dates: start: 20070303, end: 20070310
  13. NITRAZEPAM [Concomitant]
     Route: 048
     Dates: start: 20070310
  14. DEPAKENE [Concomitant]
     Indication: SCHIZOPHRENIA
     Dosage: DIVIDED INTO 3 DOSES
     Route: 048
     Dates: start: 20070110, end: 20070224
  15. DEPAKENE [Concomitant]
     Dosage: DIVIDED INTO 3 DOSES
     Route: 048
     Dates: start: 20070224
  16. AKINETON [Concomitant]
     Dates: end: 20040601

REACTIONS (1)
  - ILEUS [None]
